FAERS Safety Report 20768416 (Version 1)
Quarter: 2022Q2

REPORT INFORMATION
  Report Type: Report from Study
  Country: DE (occurrence: DE)
  Receive Date: 20220429
  Receipt Date: 20220429
  Transmission Date: 20220721
  Serious: Yes (Hospitalization)
  Sender: FDA-Public Use
  Company Number: DE-ARBOR PHARMACEUTICALS, LLC-DE-2022ARB001110

PATIENT

DRUGS (2)
  1. NIMODIPINE [Suspect]
     Active Substance: NIMODIPINE
     Indication: Delayed ischaemic neurological deficit
     Dosage: 2 MILLIGRAM, QH, (10 ML/H)
     Route: 013
  2. NIMODIPINE [Suspect]
     Active Substance: NIMODIPINE
     Dosage: UNK

REACTIONS (1)
  - Vasogenic cerebral oedema [Recovered/Resolved]
